FAERS Safety Report 18637674 (Version 1)
Quarter: 2020Q4

REPORT INFORMATION
  Report Type: Spontaneous
  Country: US (occurrence: US)
  Receive Date: 20201218
  Receipt Date: 20201218
  Transmission Date: 20210114
  Serious: Yes (Other)
  Sender: FDA-Public Use
  Company Number: US-JNJFOC-20201220713

PATIENT
  Sex: Female

DRUGS (2)
  1. SPRAVATO [Suspect]
     Active Substance: ESKETAMINE
     Dosage: 84MG, 8 TOTAL DOSES
     Dates: start: 20201005, end: 20201130
  2. SPRAVATO [Suspect]
     Active Substance: ESKETAMINE
     Indication: DEPRESSION
     Dosage: 56MG, 14 TOTAL DOSES
     Dates: start: 20200730, end: 20200928

REACTIONS (13)
  - Hypertonia [Unknown]
  - Dyspnoea [Unknown]
  - Blood pressure increased [Unknown]
  - Eye disorder [Unknown]
  - Memory impairment [Unknown]
  - Mental impairment [Unknown]
  - Speech disorder [Unknown]
  - Tremor [Unknown]
  - Hyperventilation [Unknown]
  - Aphasia [Unknown]
  - Muscle spasms [Unknown]
  - Muscle rigidity [Unknown]
  - Dissociation [Unknown]
